FAERS Safety Report 4386815-7 (Version None)
Quarter: 2004Q2

REPORT INFORMATION
  Report Type: 
  Country: None (occurrence: None)
  Receive Date: 20040628
  Receipt Date: 20040628
  Transmission Date: 20050107
  Serious: Yes (Hospitalization)
  Sender: FDA-Public Use
  Company Number: None

PATIENT
  Age: 46 Year
  Sex: Male
  Weight: 47.1741 kg

DRUGS (3)
  1. ADVICOR [Suspect]
     Indication: HYPERCHOLESTEROLAEMIA
     Dosage: ORAL
     Route: 048
     Dates: start: 20040405, end: 20040406
  2. ADVICOR [Suspect]
     Indication: HYPERTRIGLYCERIDAEMIA
     Dosage: ORAL
     Route: 048
     Dates: start: 20040405, end: 20040406
  3. ADVAIR INHALER [Concomitant]

REACTIONS (5)
  - ARRHYTHMIA [None]
  - DIZZINESS [None]
  - FLUSHING [None]
  - RASH [None]
  - SYNCOPE [None]
